FAERS Safety Report 25681743 (Version 1)
Quarter: 2025Q3

REPORT INFORMATION
  Report Type: Spontaneous
  Country: US (occurrence: US)
  Receive Date: 20250814
  Receipt Date: 20250814
  Transmission Date: 20251021
  Serious: Yes (Other)
  Sender: MYLAN
  Company Number: US-MYLANLABS-2025M1068331

PATIENT
  Age: 30 Year
  Sex: Female

DRUGS (12)
  1. DOXYCYCLINE [Suspect]
     Active Substance: DOXYCYCLINE
     Indication: Subcutaneous abscess
     Dosage: 100 MILLIGRAM, BID, FOUR WEEK COURSE
  2. DOXYCYCLINE [Suspect]
     Active Substance: DOXYCYCLINE
     Dosage: 100 MILLIGRAM, BID, FOUR WEEK COURSE
     Route: 065
  3. DOXYCYCLINE [Suspect]
     Active Substance: DOXYCYCLINE
     Dosage: 100 MILLIGRAM, BID, FOUR WEEK COURSE
     Route: 065
  4. DOXYCYCLINE [Suspect]
     Active Substance: DOXYCYCLINE
     Dosage: 100 MILLIGRAM, BID, FOUR WEEK COURSE
  5. TRIAMCINOLONE [Suspect]
     Active Substance: TRIAMCINOLONE
     Indication: Subcutaneous abscess
  6. TRIAMCINOLONE [Suspect]
     Active Substance: TRIAMCINOLONE
     Route: 026
  7. TRIAMCINOLONE [Suspect]
     Active Substance: TRIAMCINOLONE
     Route: 026
  8. TRIAMCINOLONE [Suspect]
     Active Substance: TRIAMCINOLONE
  9. CEPHALEXIN [Suspect]
     Active Substance: CEPHALEXIN
     Indication: Subcutaneous abscess
     Dosage: 500 MILLIGRAM, BID
  10. CEPHALEXIN [Suspect]
     Active Substance: CEPHALEXIN
     Dosage: 500 MILLIGRAM, BID
     Route: 065
  11. CEPHALEXIN [Suspect]
     Active Substance: CEPHALEXIN
     Dosage: 500 MILLIGRAM, BID
     Route: 065
  12. CEPHALEXIN [Suspect]
     Active Substance: CEPHALEXIN
     Dosage: 500 MILLIGRAM, BID

REACTIONS (1)
  - Treatment failure [Unknown]
